FAERS Safety Report 5500013-2 (Version None)
Quarter: 2007Q4

REPORT INFORMATION
  Report Type: 
  Country: None (occurrence: None)
  Receive Date: 20071026
  Receipt Date: 20071020
  Transmission Date: 20080405
  Serious: Yes (Other)
  Sender: FDA-Public Use
  Company Number: US-PFIZER INC-2007089340

PATIENT
  Sex: Female
  Weight: 88.2 kg

DRUGS (5)
  1. CHANTIX [Suspect]
     Indication: SMOKING CESSATION THERAPY
     Dates: start: 20070101, end: 20071018
  2. CETIRIZINE HCL [Suspect]
     Dates: start: 20070101, end: 20070101
  3. SOLU-MEDROL [Suspect]
  4. ACETYLSALICYLIC ACID SRT [Concomitant]
  5. TOPROL-XL [Concomitant]

REACTIONS (14)
  - AGEUSIA [None]
  - ANOSMIA [None]
  - ASTHMA [None]
  - COUGH [None]
  - DYSGEUSIA [None]
  - EAR DISCOMFORT [None]
  - EAR PAIN [None]
  - EATING DISORDER [None]
  - HYPERSENSITIVITY [None]
  - PRODUCTIVE COUGH [None]
  - SINUS CONGESTION [None]
  - SINUSITIS [None]
  - TINNITUS [None]
  - WHEEZING [None]
